FAERS Safety Report 5397732-8 (Version None)
Quarter: 2007Q3

REPORT INFORMATION
  Report Type: 
  Country: None (occurrence: None)
  Receive Date: 20070723
  Receipt Date: 20070723
  Transmission Date: 20080115
  Serious: Yes (Hospitalization, Other)
  Sender: FDA-Public Use
  Company Number: None

PATIENT
  Age: 76 Year
  Sex: Male
  Weight: 72.5755 kg

DRUGS (2)
  1. LUPRON DEPOT [Suspect]
     Indication: PROSTATE CANCER
     Dosage: DEPO-LUPRON INJECTIONS1X MO. -EVERY 4 MOS IM
     Route: 030
     Dates: start: 19951110, end: 20070303
  2. ZETIA 10 MG DON'T REMEMBER [Suspect]
     Indication: BLOOD CHOLESTEROL
     Dosage: ZETIA 1 A DAY PO
     Route: 048
     Dates: start: 20021214, end: 20051210

REACTIONS (14)
  - AMNESIA [None]
  - ASTHENIA [None]
  - BALANCE DISORDER [None]
  - BLOOD CHOLESTEROL INCREASED [None]
  - DEMENTIA ALZHEIMER'S TYPE [None]
  - DYSARTHRIA [None]
  - FALL [None]
  - FATIGUE [None]
  - GAIT DISTURBANCE [None]
  - HALLUCINATION [None]
  - HIP FRACTURE [None]
  - OSTEOPOROSIS [None]
  - UPPER LIMB FRACTURE [None]
  - WALKING AID USER [None]
